FAERS Safety Report 18348919 (Version 6)
Quarter: 2020Q4

REPORT INFORMATION
  Report Type: Spontaneous
  Country: US (occurrence: US)
  Receive Date: 20201006
  Receipt Date: 20201028
  Transmission Date: 20210114
  Serious: No
  Sender: FDA-Public Use
  Company Number: US-AMGEN-USASP2020159501

PATIENT
  Age: 84 Year
  Sex: Male

DRUGS (1)
  1. NEULASTA [Suspect]
     Active Substance: PEGFILGRASTIM
     Indication: NEUTROPENIA
     Dosage: 6 MILLIGRAM, Q3WK (EVERY 21 DAYS)
     Route: 058

REACTIONS (3)
  - Device adhesion issue [Unknown]
  - Application site haemorrhage [Unknown]
  - Device physical property issue [Unknown]

NARRATIVE: CASE EVENT DATE: 202009
